FAERS Safety Report 18594263 (Version 5)
Quarter: 2022Q1

REPORT INFORMATION
  Report Type: Report from Study
  Country: US (occurrence: US)
  Receive Date: 20201209
  Receipt Date: 20220110
  Transmission Date: 20220424
  Serious: Yes (Hospitalization, Other)
  Sender: FDA-Public Use
  Company Number: US-AUROBINDO-AUR-APL-2020-060344

PATIENT
  Age: 43 Year
  Sex: Female
  Weight: 72.6 kg

DRUGS (1)
  1. BELINOSTAT [Suspect]
     Active Substance: BELINOSTAT
     Indication: Peripheral T-cell lymphoma unspecified
     Dosage: 1790 MILLIGRAM 5 DAY CYCLES EVERY 21 DAYS
     Route: 042
     Dates: start: 20201026

REACTIONS (7)
  - Hydrocephalus [Not Recovered/Not Resolved]
  - Mental status changes [Recovered/Resolved]
  - Urinary tract infection [Recovered/Resolved]
  - Localised infection [Recovered/Resolved]
  - Gamma-glutamyltransferase increased [Unknown]
  - Blood pressure increased [Recovered/Resolved]
  - Sinus tachycardia [Recovered/Resolved]

NARRATIVE: CASE EVENT DATE: 20200815
